FAERS Safety Report 19274601 (Version 1)
Quarter: 2021Q2

REPORT INFORMATION
  Report Type: Spontaneous
  Country: FR (occurrence: FR)
  Receive Date: 20210519
  Receipt Date: 20210519
  Transmission Date: 20210717
  Serious: Yes (Life-Threatening)
  Sender: FDA-Public Use
  Company Number: FR-ACCORD-225482

PATIENT
  Age: 32 Year
  Sex: Male

DRUGS (5)
  1. PANTOPRAZOLE [Suspect]
     Active Substance: PANTOPRAZOLE
     Indication: PRODUCT USED FOR UNKNOWN INDICATION
     Route: 048
     Dates: start: 2018
  2. CLOZAPINE. [Suspect]
     Active Substance: CLOZAPINE
     Indication: DISSOCIATIVE DISORDER
     Route: 048
     Dates: start: 2018, end: 202011
  3. CIRCADIN [Suspect]
     Active Substance: MELATONIN
     Indication: INSOMNIA
     Route: 048
     Dates: start: 2020
  4. BROMAZEPAM [Suspect]
     Active Substance: BROMAZEPAM
     Indication: ANXIETY
     Route: 048
     Dates: start: 2017
  5. TERCIAN [Suspect]
     Active Substance: CYAMEMAZINE
     Indication: DISSOCIATIVE DISORDER
     Dosage: STRENGTH:25 MG, SCORED FILM?COATED TABLET
     Route: 048
     Dates: start: 2016

REACTIONS (2)
  - Gastrointestinal necrosis [Recovered/Resolved with Sequelae]
  - Faecaloma [Recovered/Resolved with Sequelae]

NARRATIVE: CASE EVENT DATE: 20201129
